FAERS Safety Report 9053822 (Version 1)
Quarter: 2013Q1

REPORT INFORMATION
  Report Type: Spontaneous
  Country: US (occurrence: None)
  Receive Date: 20130201
  Receipt Date: 20130201
  Transmission Date: 20140127
  Serious: Yes (Disabling)
  Sender: FDA-Public Use
  Company Number: None

PATIENT
  Age: 48 Year
  Sex: Male
  Weight: 124.74 kg

DRUGS (1)
  1. CYCLOSET [Suspect]
     Indication: DIABETES MELLITUS
     Dosage: 4.8MG -0.8 X 6- ONCE PER DAY
     Dates: start: 20120529, end: 20121213

REACTIONS (1)
  - Parkinsonism [None]
